FAERS Safety Report 5030169-X (Version None)
Quarter: 2006Q2

REPORT INFORMATION
  Report Type: 
  Country: None (occurrence: None)
  Receive Date: 20060614
  Receipt Date: 20060606
  Transmission Date: 20061013
  Serious: Yes (Hospitalization)
  Sender: FDA-Public Use
  Company Number: 2006050410

PATIENT
  Age: 58 Year
  Sex: Male
  Weight: 80 kg

DRUGS (4)
  1. NORVASC [Suspect]
     Indication: HYPERTENSION
     Dosage: 5 MG (5 MG,QD), ORAL
     Route: 048
     Dates: start: 20011201, end: 20060405
  2. BLOPRESS (CANDESARTAN CILEXETIL) [Suspect]
     Indication: HYPERTENSION
     Dosage: 8 MG (8 MG,QD) ,ORAL
     Route: 048
     Dates: start: 20011020, end: 20060405
  3. ALLOPURINOL [Suspect]
     Indication: HYPERURICAEMIA
     Dosage: 100 MG (100 MG, QD), ORAL
     Route: 048
     Dates: start: 20041201, end: 20060405
  4. ACETAMINOPHEN [Suspect]
     Indication: PYREXIA
     Dosage: 2 CAPSULES (QD), ORAL
     Route: 048
     Dates: start: 20060404, end: 20060404

REACTIONS (22)
  - BLOOD CREATININE INCREASED [None]
  - ECZEMA [None]
  - ERYTHEMA MULTIFORME [None]
  - FEELING HOT [None]
  - GOUT [None]
  - HYPERHIDROSIS [None]
  - HYPERTHERMIA [None]
  - HYPERURICAEMIA [None]
  - INFECTION [None]
  - LIVER DISORDER [None]
  - LIVER FUNCTION TEST ABNORMAL [None]
  - LOSS OF CONSCIOUSNESS [None]
  - MALAISE [None]
  - MEMORY IMPAIRMENT [None]
  - MUCOUS MEMBRANE DISORDER [None]
  - ORAL INTAKE REDUCED [None]
  - PAIN [None]
  - PHARMACEUTICAL PRODUCT COMPLAINT [None]
  - PRURITUS [None]
  - PYREXIA [None]
  - RENAL IMPAIRMENT [None]
  - STEVENS-JOHNSON SYNDROME [None]
